FAERS Safety Report 7620441-9 (Version None)
Quarter: 2011Q3

REPORT INFORMATION
  Report Type: 
  Country: None (occurrence: None)
  Receive Date: 20110719
  Receipt Date: 20110713
  Transmission Date: 20111222
  Serious: Yes (Death)
  Sender: FDA-Public Use
  Company Number: GB-TEVA-284208ISR

PATIENT
  Age: 22 Year
  Sex: Male

DRUGS (3)
  1. DIAMORPHINE [Suspect]
     Indication: DRUG ABUSE
     Route: 055
  2. DIAZEPAM [Suspect]
     Indication: PRODUCT USED FOR UNKNOWN INDICATION
  3. DHC-CONTINUS (DIHYDROCODEINE HYDROGEN TARTRATE) [Suspect]
     Indication: PRODUCT USED FOR UNKNOWN INDICATION

REACTIONS (1)
  - TOXICITY TO VARIOUS AGENTS [None]
